FAERS Safety Report 13897879 (Version 1)
Quarter: 2017Q3

REPORT INFORMATION
  Report Type: Spontaneous
  Country: JP (occurrence: JP)
  Receive Date: 20170823
  Receipt Date: 20170823
  Transmission Date: 20171127
  Serious: Yes (Hospitalization)
  Sender: FDA-Public Use
  Company Number: JP-TEVA-799124ROM

PATIENT
  Age: 3 Year
  Sex: Female

DRUGS (5)
  1. PREDNISOLONE. [Concomitant]
     Active Substance: PREDNISOLONE
     Indication: HENOCH-SCHONLEIN PURPURA NEPHRITIS
     Route: 065
  2. MIZORIBINE [Concomitant]
     Active Substance: MIZORIBINE
     Indication: HENOCH-SCHONLEIN PURPURA NEPHRITIS
     Route: 065
  3. DIPYRIDAMOLE. [Concomitant]
     Active Substance: DIPYRIDAMOLE
     Indication: HENOCH-SCHONLEIN PURPURA NEPHRITIS
     Route: 065
  4. METHYLPREDNISOLONE. [Concomitant]
     Active Substance: METHYLPREDNISOLONE
     Indication: HENOCH-SCHONLEIN PURPURA NEPHRITIS
     Route: 065
  5. WARFARIN [Suspect]
     Active Substance: WARFARIN
     Indication: HENOCH-SCHONLEIN PURPURA NEPHRITIS
     Route: 065

REACTIONS (1)
  - Toxic epidermal necrolysis [Recovered/Resolved]
